FAERS Safety Report 6740690-1 (Version None)
Quarter: 2010Q2

REPORT INFORMATION
  Report Type: 
  Country: None (occurrence: None)
  Receive Date: 20100525
  Receipt Date: 20100514
  Transmission Date: 20101027
  Serious: Yes (Other)
  Sender: FDA-Public Use
  Company Number: PT-GENENTECH-302020

PATIENT
  Age: 50 Year
  Sex: Female

DRUGS (10)
  1. RITUXIMAB [Suspect]
     Indication: RHEUMATOID ARTHRITIS
     Dosage: UNK
     Route: 065
     Dates: start: 20070401
  2. AZATHIOPRINE SODIUM [Concomitant]
     Indication: DRUG USE FOR UNKNOWN INDICATION
     Dosage: UNK
     Dates: start: 19971201, end: 20040601
  3. PREDNISOLONE [Concomitant]
     Indication: DRUG USE FOR UNKNOWN INDICATION
     Dosage: UNK
     Dates: start: 19910101
  4. HYDROXYCHLOROQUINE SULFATE [Concomitant]
     Indication: DRUG USE FOR UNKNOWN INDICATION
     Dosage: UNK
     Dates: start: 19961101
  5. ADALIMUMAB [Concomitant]
     Indication: DRUG USE FOR UNKNOWN INDICATION
     Dosage: 40 MG, 1/WEEK
     Route: 058
     Dates: start: 20030301
  6. METHOTREXATE [Concomitant]
     Indication: DRUG USE FOR UNKNOWN INDICATION
     Dosage: 7.5 MG, 1/WEEK
     Dates: start: 19950901
  7. METHOTREXATE [Concomitant]
     Dosage: 5 MG, 1/WEEK
     Dates: start: 19961101, end: 19970101
  8. METHOTREXATE [Concomitant]
     Dosage: 10 MG, 1/WEEK
     Dates: start: 20040601
  9. METHOTREXATE [Concomitant]
     Dosage: 10 MG, 1/WEEK
     Dates: start: 20100401
  10. ETANERCEPT [Concomitant]
     Indication: DRUG USE FOR UNKNOWN INDICATION
     Dosage: UNK
     Dates: start: 20060301

REACTIONS (15)
  - ASTHENIA [None]
  - BLOOD ALKALINE PHOSPHATASE INCREASED [None]
  - CHEST PAIN [None]
  - CHOLESTASIS [None]
  - EXCORIATION [None]
  - GAMMA-GLUTAMYLTRANSFERASE INCREASED [None]
  - GANGLIONEUROMA [None]
  - HEPATIC CIRRHOSIS [None]
  - HEPATIC STEATOSIS [None]
  - MUSCULOSKELETAL CHEST PAIN [None]
  - PATHOLOGICAL FRACTURE [None]
  - PYREXIA [None]
  - RADIUS FRACTURE [None]
  - STEATORRHOEA [None]
  - WEIGHT DECREASED [None]
